FAERS Safety Report 18284861 (Version 1)
Quarter: 2020Q3

REPORT INFORMATION
  Report Type: Spontaneous
  Country: ZA (occurrence: ZA)
  Receive Date: 20200918
  Receipt Date: 20200918
  Transmission Date: 20201103
  Serious: Yes (Other)
  Sender: FDA-Public Use
  Company Number: ZA-JNJFOC-20200916276

PATIENT
  Age: 4 Decade
  Sex: Male

DRUGS (1)
  1. RISPERLET [Suspect]
     Active Substance: RISPERIDONE
     Indication: PRODUCT USED FOR UNKNOWN INDICATION
     Dosage: SINCE THE CHILDHOOD
     Route: 065

REACTIONS (2)
  - Renal failure [Unknown]
  - Epilepsy [Unknown]
